FAERS Safety Report 13383756 (Version 4)
Quarter: 2017Q2

REPORT INFORMATION
  Report Type: Spontaneous
  Country: US (occurrence: US)
  Receive Date: 20170329
  Receipt Date: 20170518
  Transmission Date: 20170830
  Serious: Yes (Hospitalization, Other)
  Sender: FDA-Public Use
  Company Number: US-PFIZER INC-2017132542

PATIENT
  Age: 80 Year
  Sex: Female
  Weight: 61.22 kg

DRUGS (2)
  1. IBRANCE [Suspect]
     Active Substance: PALBOCICLIB
     Dosage: 125 MG, CYCLIC (DAY 1-21 Q 28 DAYS)
     Route: 048
     Dates: end: 20170406
  2. IBRANCE [Suspect]
     Active Substance: PALBOCICLIB
     Indication: BREAST CANCER METASTATIC
     Dosage: 125 MG, CYCLIC(DAYS 1-21 Q28 DAYS)
     Route: 048
     Dates: start: 20170310

REACTIONS (4)
  - Neoplasm progression [Unknown]
  - Tumour haemorrhage [Unknown]
  - International normalised ratio increased [Unknown]
  - Thrombosis [Unknown]

NARRATIVE: CASE EVENT DATE: 20170406
